FAERS Safety Report 24853152 (Version 2)
Quarter: 2025Q3

REPORT INFORMATION
  Report Type: Spontaneous
  Country: RU (occurrence: None)
  Receive Date: 20250117
  Receipt Date: 20250810
  Transmission Date: 20251021
  Serious: Yes (Other)
  Sender: ALEXION PHARMACEUTICALS
  Company Number: RU-ASTRAZENECA-202501RUS005827RU

PATIENT

DRUGS (1)
  1. PULMICORT TURBUHALER [Suspect]
     Active Substance: BUDESONIDE
     Route: 065

REACTIONS (5)
  - Bronchitis [Unknown]
  - Productive cough [Not Recovered/Not Resolved]
  - Rales [Recovered/Resolved]
  - Drug ineffective [Unknown]
  - Off label use [Unknown]
